FAERS Safety Report 11677239 (Version 1)
Quarter: 2015Q4

REPORT INFORMATION
  Report Type: Report from Study
  Country: JP (occurrence: JP)
  Receive Date: 20151028
  Receipt Date: 20151028
  Transmission Date: 20160304
  Serious: Yes (Life-Threatening)
  Sender: FDA-Public Use
  Company Number: JP-TEVA-604272ISR

PATIENT
  Age: 64 Year
  Sex: Male
  Weight: 54.35 kg

DRUGS (14)
  1. CISPLATIN. [Suspect]
     Active Substance: CISPLATIN
     Indication: LUNG ADENOCARCINOMA
     Dosage: 119 MG, 1X/DAY
     Route: 042
     Dates: start: 20151001, end: 20151001
  2. LOCOID [Concomitant]
     Active Substance: HYDROCORTISONE BUTYRATE
     Indication: DERMATITIS ACNEIFORM
     Dosage: UNK, AS NEEDED
     Route: 061
  3. SENNOSIDE A+B [Concomitant]
     Active Substance: SENNOSIDES A AND B
     Indication: CONSTIPATION
     Dosage: 12 MG, AS NEEDED
     Route: 048
     Dates: start: 20151002
  4. PRIMPERAN [Concomitant]
     Active Substance: METOCLOPRAMIDE HYDROCHLORIDE
     Indication: NAUSEA
     Dosage: 5 MG, AS NEEDED
     Route: 048
     Dates: start: 20151004
  5. CALONAL [Concomitant]
     Active Substance: ACETAMINOPHEN
     Indication: PYREXIA
     Dosage: 400 MG, AS NEEDED
     Route: 048
     Dates: start: 20151007
  6. CALONAL [Concomitant]
     Active Substance: ACETAMINOPHEN
     Indication: INFECTION
  7. HIRUDOID [Concomitant]
     Active Substance: GLYCOSAMINOGLYCANS
     Indication: DERMATITIS ACNEIFORM
     Dosage: UNK, AS NEEDED
     Route: 061
     Dates: start: 20151010
  8. SULFASALAZINE. [Suspect]
     Active Substance: SULFASALAZINE
     Indication: LUNG ADENOCARCINOMA
     Dosage: UNK, 1X/DAY
     Dates: start: 20151001, end: 20151010
  9. VASOLAN [Concomitant]
     Active Substance: VERAPAMIL HYDROCHLORIDE
     Indication: ATRIAL FIBRILLATION
     Dosage: 5 MG, SINGLE
     Route: 042
     Dates: start: 20151012, end: 20151012
  10. LUNESTA [Concomitant]
     Active Substance: ESZOPICLONE
     Indication: INSOMNIA
     Dosage: 1 MG, AS NEEDED
     Route: 048
  11. ZOSYN [Concomitant]
     Active Substance: PIPERACILLIN SODIUM\TAZOBACTAM SODIUM
     Indication: INFECTION
     Dosage: 4.5 G, 3X/DAY
     Route: 042
     Dates: start: 20151010
  12. ALIMTA [Suspect]
     Active Substance: PEMETREXED DISODIUM
     Indication: LUNG ADENOCARCINOMA
     Dosage: 794 MG, 1X/DAY
     Route: 042
     Dates: start: 20151001, end: 20151001
  13. NEXIUM [Concomitant]
     Active Substance: ESOMEPRAZOLE MAGNESIUM
     Indication: ABDOMINAL DISCOMFORT
     Dosage: 20 MG, 1X/DAY
     Route: 048
     Dates: start: 20151007
  14. PANVITAN [Concomitant]
     Indication: PROPHYLAXIS
     Dosage: 1 G, 1X/DAY
     Route: 048

REACTIONS (1)
  - Shock [Recovered/Resolved]

NARRATIVE: CASE EVENT DATE: 20151012
